FAERS Safety Report 26201539 (Version 1)
Quarter: 2025Q4

REPORT INFORMATION
  Report Type: Spontaneous
  Country: US (occurrence: US)
  Receive Date: 20251226
  Receipt Date: 20251226
  Transmission Date: 20260118
  Serious: No
  Sender: PADAGIS
  Company Number: US-PADAGIS-2025PAD01579

PATIENT

DRUGS (2)
  1. MIDAZOLAM HYDROCHLORIDE [Interacting]
     Active Substance: MIDAZOLAM HYDROCHLORIDE
     Indication: Product used for unknown indication
     Dosage: AFTER AN OVERNIGHT FAST OF AT LEAST 10 H, WHICH CON TINUED FOR 4 H POSTDOSE ON DAY 1  AND ON DAY 8 W
     Route: 065
  2. CASDATIFAN [Interacting]
     Active Substance: CASDATIFAN
     Indication: Product used for unknown indication
     Dosage: 5 10-MG CAPSULES, AND FLUID ON DAYS 2 AND 7 AND AT LEAST 2 H BEFORE OR AFTER A MEAL AND FLUID ON DAY
     Route: 048

REACTIONS (1)
  - Drug interaction [Unknown]
